FAERS Safety Report 21471137 (Version 2)
Quarter: 2022Q4

REPORT INFORMATION
  Report Type: Spontaneous
  Country: JP (occurrence: JP)
  Receive Date: 20221018
  Receipt Date: 20221021
  Transmission Date: 20230112
  Serious: Yes (Death, Life-Threatening, Hospitalization, Other)
  Sender: FDA-Public Use
  Company Number: JP-MLMSERVICE-20220929-3825080-1

PATIENT
  Age: 78 Year
  Sex: Male

DRUGS (2)
  1. LEFLUNOMIDE [Suspect]
     Active Substance: LEFLUNOMIDE
     Indication: Rheumatoid arthritis
     Route: 065
  2. TACROLIMUS [Suspect]
     Active Substance: TACROLIMUS
     Indication: Rheumatoid arthritis
     Route: 065

REACTIONS (9)
  - Central nervous system lymphoma [Fatal]
  - Central nervous system lesion [Fatal]
  - Headache [Fatal]
  - Lymphoproliferative disorder [Fatal]
  - Plasmacytoma [Fatal]
  - Metastases to meninges [Fatal]
  - Cognitive disorder [Fatal]
  - Malaise [Fatal]
  - Tumour haemorrhage [Fatal]
